FAERS Safety Report 6325228-5 (Version None)
Quarter: 2009Q3

REPORT INFORMATION
  Report Type: 
  Country: None (occurrence: None)
  Receive Date: 20090824
  Receipt Date: 20090820
  Transmission Date: 20100115
  Serious: Yes (Death, Hospitalization)
  Sender: FDA-Public Use
  Company Number: PHHY2009NO35203

PATIENT
  Sex: Male

DRUGS (2)
  1. CERTICAN [Suspect]
  2. SANDIMMUNE [Suspect]

REACTIONS (3)
  - BRAIN HYPOXIA [None]
  - DYSPNOEA [None]
  - PULMONARY EMBOLISM [None]
